FAERS Safety Report 11752039 (Version 3)
Quarter: 2015Q4

REPORT INFORMATION
  Report Type: Report from Study
  Country: CA (occurrence: CA)
  Receive Date: 20151118
  Receipt Date: 20151202
  Transmission Date: 20160304
  Serious: Yes (Death)
  Sender: FDA-Public Use
  Company Number: PHHY2015CA145728

PATIENT
  Age: 77 Year
  Sex: Male

DRUGS (2)
  1. SANDOSTATIN [Suspect]
     Active Substance: OCTREOTIDE ACETATE
     Indication: IMPAIRED GASTRIC EMPTYING
     Dosage: 150 UG, BID
     Route: 058
     Dates: start: 20151006, end: 201510
  2. SANDOSTATIN LAR DEPOT [Suspect]
     Active Substance: OCTREOTIDE ACETATE
     Indication: IMPAIRED GASTRIC EMPTYING
     Dosage: 30 MG, QMO
     Route: 030
     Dates: start: 20151006, end: 20151105

REACTIONS (8)
  - Constipation [Unknown]
  - Asthenia [Unknown]
  - Blood pressure diastolic decreased [Unknown]
  - Eating disorder [Unknown]
  - Weight decreased [Unknown]
  - Gastrooesophageal reflux disease [Unknown]
  - Product use issue [Unknown]
  - Death [Fatal]

NARRATIVE: CASE EVENT DATE: 201511
